FAERS Safety Report 9449410 (Version 2)
Quarter: 2013Q3

REPORT INFORMATION
  Report Type: Report from Study
  Country: JP (occurrence: JP)
  Receive Date: 20130809
  Receipt Date: 20130916
  Transmission Date: 20140515
  Serious: Yes (Hospitalization)
  Sender: FDA-Public Use
  Company Number: JP-ROCHE-1257283

PATIENT
  Age: 77 Year
  Sex: Male

DRUGS (11)
  1. METHOXY POLYETHYLENE GLYCOL-EPOETIN BETA [Suspect]
     Indication: NEPHROGENIC ANAEMIA
     Route: 042
     Dates: start: 20121128
  2. MICARDIS [Concomitant]
     Indication: HYPERTENSION
     Route: 048
  3. FEBURIC [Concomitant]
     Indication: GLOMERULONEPHRITIS CHRONIC
     Route: 048
  4. MEVALOTIN [Concomitant]
     Indication: HYPERLIPIDAEMIA
     Route: 048
  5. ADALAT CR [Concomitant]
     Indication: HYPERTENSION
     Route: 048
  6. PURSENNID [Concomitant]
     Indication: CONSTIPATION
     Route: 048
  7. MYSLEE [Concomitant]
     Indication: INSOMNIA
     Route: 048
  8. KREMEZIN [Concomitant]
     Indication: GLOMERULONEPHRITIS CHRONIC
     Route: 048
  9. PROTECADIN [Concomitant]
     Indication: PROPHYLAXIS
     Route: 048
     Dates: start: 20130416
  10. ARGAMATE [Concomitant]
     Indication: GLOMERULONEPHRITIS CHRONIC
     Route: 048
     Dates: start: 20130308, end: 20130515
  11. KAYEXALATE [Concomitant]
     Indication: GLOMERULONEPHRITIS CHRONIC
     Route: 048
     Dates: start: 20130516

REACTIONS (1)
  - Gastric ulcer haemorrhage [Recovering/Resolving]
